FAERS Safety Report 4355469-8 (Version None)
Quarter: 2004Q2

REPORT INFORMATION
  Report Type: 
  Country: None (occurrence: None)
  Receive Date: 20040510
  Receipt Date: 20040429
  Transmission Date: 20050107
  Serious: Yes (Hospitalization)
  Sender: FDA-Public Use
  Company Number: US-MERCK-0405USA00016

PATIENT
  Age: 69 Year
  Sex: Male

DRUGS (3)
  1. ACIPHEX [Concomitant]
     Route: 065
  2. ZOCOR [Suspect]
     Route: 048
  3. COUMADIN [Concomitant]
     Route: 065

REACTIONS (2)
  - HAEMATURIA [None]
  - LIVER FUNCTION TEST ABNORMAL [None]
